FAERS Safety Report 12483599 (Version 2)
Quarter: 2016Q3

REPORT INFORMATION
  Report Type: Spontaneous
  Country: US (occurrence: US)
  Receive Date: 20160621
  Receipt Date: 20160711
  Transmission Date: 20161109
  Serious: No
  Sender: FDA-Public Use
  Company Number: US-009507513-1605USA014010

PATIENT
  Sex: Female
  Weight: 59.41 kg

DRUGS (2)
  1. NEXPLANON [Suspect]
     Active Substance: ETONOGESTREL
     Indication: CONTRACEPTION
     Dosage: 68 MG, ONE IMPLANT, UNK
     Route: 058
  2. NEXPLANON [Suspect]
     Active Substance: ETONOGESTREL
     Dosage: 68 MG, ONE IMPLANT, UNK
     Route: 058

REACTIONS (2)
  - Product quality issue [Unknown]
  - Complication of device insertion [Recovered/Resolved]
